FAERS Safety Report 5094200-8 (Version None)
Quarter: 2006Q3

REPORT INFORMATION
  Report Type: 
  Country: None (occurrence: None)
  Receive Date: 20060830
  Receipt Date: 20060830
  Transmission Date: 20061208
  Serious: Yes (Other)
  Sender: FDA-Public Use
  Company Number: None

PATIENT
  Age: 32 Year
  Sex: Female

DRUGS (3)
  1. SUBOXONE [Suspect]
     Indication: DRUG DEPENDENCE
     Dosage: 24 MG SL
     Route: 060
     Dates: start: 20040323
  2. MOTRIN [Concomitant]
  3. NAPROXEN [Concomitant]

REACTIONS (1)
  - TOOTHACHE [None]
